FAERS Safety Report 7034088-9 (Version None)
Quarter: 2010Q4

REPORT INFORMATION
  Report Type: 
  Country: None (occurrence: None)
  Receive Date: 20101007
  Receipt Date: 20100923
  Transmission Date: 20110411
  Serious: Yes (Hospitalization)
  Sender: FDA-Public Use
  Company Number: SE-MYLANLABS-2010S1017795

PATIENT
  Age: 57 Year
  Sex: Female

DRUGS (8)
  1. ALENDRONIC ACID [Suspect]
     Route: 065
     Dates: start: 20010101, end: 20020101
  2. RISEDRONIC ACID [Suspect]
     Route: 065
     Dates: start: 20020101, end: 20090101
  3. CORTISONE [Suspect]
     Indication: RHEUMATOID ARTHRITIS
     Route: 065
  4. CORTISONE [Suspect]
     Route: 065
  5. CORTISONE [Suspect]
     Dosage: INTERMITTENT TREATMENT FOR EXACERBATIONS
     Route: 065
  6. CORTISONE [Suspect]
     Dosage: INTERMITTENT TREATMENT FOR EXACERBATIONS
     Route: 065
  7. PREDNISOLONE [Suspect]
     Indication: RHEUMATOID ARTHRITIS
     Route: 065
  8. OMEPRAZOLE [Suspect]
     Dosage: 20-40 MG/DAY
     Route: 065
     Dates: start: 20000101

REACTIONS (1)
  - FEMUR FRACTURE [None]
